FAERS Safety Report 11512313 (Version 5)
Quarter: 2015Q4

REPORT INFORMATION
  Report Type: Report from Study
  Country: JP (occurrence: JP)
  Receive Date: 20150916
  Receipt Date: 20151216
  Transmission Date: 20160304
  Serious: Yes (Life-Threatening, Hospitalization, Disabling, Other)
  Sender: FDA-Public Use
  Company Number: JP-BEH-2015053938

PATIENT
  Age: 78 Year
  Sex: Female

DRUGS (47)
  1. FUROSEMIDE. [Concomitant]
     Active Substance: FUROSEMIDE
     Indication: PULMONARY HYPERTENSION
     Route: 048
     Dates: start: 20150812, end: 20150909
  2. SODIUM PICOSULFATE [Concomitant]
     Active Substance: SODIUM PICOSULFATE
     Dosage: NASOGASTRIC
     Route: 045
     Dates: start: 20150911, end: 20150912
  3. BERIPLEX P/N [Suspect]
     Active Substance: COAGULATION FACTOR IX HUMAN\COAGULATION FACTOR VII HUMAN\COAGULATION FACTOR X HUMAN\PROTEIN C\PROTEIN S HUMAN\PROTHROMBIN
     Indication: PROCOAGULANT THERAPY
     Dosage: 43 ML. MAX INFUSION RATE 2.3 IU/KG/MIN
     Dates: start: 20150910, end: 20150910
  4. DIGOXIN. [Concomitant]
     Active Substance: DIGOXIN
     Indication: ATRIAL FIBRILLATION
     Route: 048
     Dates: start: 20150812, end: 20150909
  5. WARFARIN POTASSIUM [Concomitant]
     Active Substance: WARFARIN POTASSIUM
     Indication: ATRIAL FIBRILLATION
     Route: 048
     Dates: start: 20150812, end: 20150909
  6. SODIUM CHLORIDE. [Concomitant]
     Active Substance: SODIUM CHLORIDE
     Indication: HYPONATRAEMIA
     Route: 041
     Dates: start: 20150910, end: 20150910
  7. POTASSIUM CHLORIDE. [Concomitant]
     Active Substance: POTASSIUM CHLORIDE
     Route: 041
     Dates: start: 20150911, end: 20150912
  8. ATROPINE SULFATE. [Concomitant]
     Active Substance: ATROPINE SULFATE
     Indication: BRADYCARDIA
     Dosage: 0-5 TIMES PER DAY
     Route: 040
     Dates: start: 20150910, end: 20150914
  9. NAFAMOSTAT MESILATE [Concomitant]
     Active Substance: NAFAMOSTAT MESYLATE
     Indication: HAEMODIALYSIS
     Dosage: 0-2 TIMES PER DAY
     Route: 041
     Dates: start: 20150910, end: 20150920
  10. KETAMINE HYDROCHLORIDE. [Concomitant]
     Active Substance: KETAMINE HYDROCHLORIDE
     Indication: SEDATION
     Dosage: ONCE
     Route: 040
     Dates: start: 20150910, end: 20150910
  11. HUMAN RED BLOOD CELLS [Concomitant]
     Active Substance: HUMAN RED BLOOD CELL
     Dosage: 2 UNITS
     Route: 041
     Dates: start: 20150910
  12. HUMAN RED BLOOD CELLS [Concomitant]
     Active Substance: HUMAN RED BLOOD CELL
     Indication: ANAEMIA
     Dosage: 2 UNITS
     Route: 041
     Dates: start: 20150922
  13. HYDROCORTISONE SODIUM SUCCINATE [Concomitant]
     Active Substance: HYDROCORTISONE SODIUM SUCCINATE
     Indication: ADRENAL INSUFFICIENCY
     Dosage: 0-1 TIME PER DAY
     Route: 041
     Dates: start: 20150811, end: 20150911
  14. HUMAN SERUM ALBUMIN [Concomitant]
     Active Substance: ALBUMIN (HUMAN)
     Indication: HYPOALBUMINAEMIA
     Route: 042
     Dates: start: 20150912
  15. DOPAMINE HYDROCHLORIDE. [Concomitant]
     Active Substance: DOPAMINE HYDROCHLORIDE
     Indication: HYPOTENSION
     Dosage: 12ML/H ONCE
     Route: 041
     Dates: start: 20150910, end: 20150910
  16. D-SORBITOL [Concomitant]
     Dosage: NASOGASTRIC. STOPPED ??-SEP-2015
     Route: 045
     Dates: start: 20150911
  17. CARBOCYSTEINE [Concomitant]
     Active Substance: CARBOCYSTEINE
     Indication: BRONCHIECTASIS
     Route: 048
     Dates: start: 20150812, end: 20150909
  18. ISOSORBIDE DINITRATE. [Concomitant]
     Active Substance: ISOSORBIDE DINITRATE
     Dosage: STOPPED IN 2015
     Route: 062
     Dates: start: 20150812, end: 20150910
  19. ACETATED RINGER^S SOLUTION WITH GLUCOSE [Concomitant]
     Indication: FLUID REPLACEMENT
     Dosage: 1 BID, 4 DAY ONCE DAILY [SIC]
     Dates: start: 20150910, end: 20150914
  20. SODIUM BICARBONATE. [Concomitant]
     Active Substance: SODIUM BICARBONATE
     Indication: ACIDOSIS
     Dosage: ONCE
     Route: 041
     Dates: start: 20150910, end: 20150910
  21. MAGNESIUM SULFATE. [Concomitant]
     Active Substance: MAGNESIUM SULFATE
     Route: 042
     Dates: start: 20150910
  22. CLARITHROMYCIN. [Concomitant]
     Active Substance: CLARITHROMYCIN
     Indication: BRONCHIECTASIS
     Route: 048
     Dates: start: 20150812, end: 20150909
  23. POTASSIUM CHLORIDE. [Concomitant]
     Active Substance: POTASSIUM CHLORIDE
     Indication: HYPOKALAEMIA
     Dosage: 0-12 TIMES PER DAY
     Route: 041
     Dates: start: 20150910, end: 20150923
  24. DOBUTAMINE HYDROCHLORIDE. [Concomitant]
     Active Substance: DOBUTAMINE HYDROCHLORIDE
     Indication: BRADYCARDIA
     Dosage: 12ML/H
     Route: 041
     Dates: start: 20150910, end: 20150913
  25. HUMAN RED BLOOD CELLS [Concomitant]
     Active Substance: HUMAN RED BLOOD CELL
     Dosage: 2 UNITS
     Route: 041
     Dates: start: 20150911
  26. FENTANYL CITRATE. [Concomitant]
     Active Substance: FENTANYL CITRATE
     Indication: ANALGESIC THERAPY
     Route: 041
     Dates: start: 20150910, end: 20150919
  27. GLUCOSE [Concomitant]
     Active Substance: DEXTROSE
     Indication: HAEMODIALYSIS
     Dosage: 0-1 TIMES PER DAY
     Route: 041
     Dates: start: 20150910, end: 20150920
  28. SOLITA T [Concomitant]
     Indication: FLUID REPLACEMENT
     Dosage: 70ML/H ONCE
     Route: 041
     Dates: start: 20150910, end: 20150910
  29. LIMAPROST ALFADEX [Concomitant]
     Active Substance: LIMAPROST
     Route: 048
     Dates: start: 20150812, end: 20150909
  30. AZOSEMIDE [Concomitant]
     Active Substance: AZOSEMIDE
     Indication: PULMONARY HYPERTENSION
     Route: 048
     Dates: start: 20150812, end: 20150908
  31. IMIDAPRIL HYDROCHLORIDE [Concomitant]
     Active Substance: IMIDAPRIL HYDROCHLORIDE
     Indication: PULMONARY HYPERTENSION
     Route: 048
     Dates: start: 20150812, end: 20150909
  32. TAZOBACTAM SODIUM, PIPERACILLIN HYDRATE [Concomitant]
     Indication: PNEUMONIA ASPIRATION
     Dates: start: 20150830, end: 20150902
  33. LEVOFLOXACIN HEMIHYDRATE [Concomitant]
     Active Substance: LEVOFLOXACIN
     Indication: PNEUMONIA
     Route: 041
     Dates: start: 20150910
  34. BENFOTIAMINE B6 B12 COMBINED DRUG [Concomitant]
     Indication: NUTRITIONAL SUPPLEMENTATION
     Dosage: 1 VIAL
     Route: 040
     Dates: start: 20150910, end: 20150913
  35. LIDOCAINE HYDROCHLORIDE. [Concomitant]
     Active Substance: LIDOCAINE HYDROCHLORIDE
     Indication: ARRHYTHMIA
     Route: 040
     Dates: start: 20150912, end: 20150914
  36. L-ASPARTATE POTASSIUM [Concomitant]
     Indication: HYPOKALAEMIA
     Route: 048
     Dates: start: 20150815, end: 20150909
  37. FOLIC ACID. [Concomitant]
     Active Substance: FOLIC ACID
     Indication: ANAEMIA
     Dosage: 1 TABLET DAILY
     Route: 048
     Dates: start: 20150812, end: 20150909
  38. FUDOSTEINE [Concomitant]
     Active Substance: FUDOSTEINE
     Indication: CHRONIC RESPIRATORY FAILURE
     Route: 048
     Dates: start: 20150812, end: 20150909
  39. ACETATED RINGER^S SOLUTION [Concomitant]
     Indication: FLUID REPLACEMENT
     Route: 041
     Dates: start: 20150910, end: 20150910
  40. NOREPINEPHRINE [Concomitant]
     Active Substance: NOREPINEPHRINE\NOREPINEPHRINE BITARTRATE
     Indication: HYPOTENSION
     Dosage: 15ML/HR CONTINUOUS
     Route: 041
     Dates: start: 20150910
  41. OMEPRAZOLE. [Concomitant]
     Active Substance: OMEPRAZOLE
     Indication: PROPHYLAXIS AGAINST GASTROINTESTINAL ULCER
     Route: 040
     Dates: start: 20150910, end: 20150917
  42. HUMAN RED BLOOD CELLS [Concomitant]
     Active Substance: HUMAN RED BLOOD CELL
     Dosage: 2 UNITS
     Route: 041
     Dates: start: 20150915
  43. ATROPINE SULFATE. [Concomitant]
     Active Substance: ATROPINE SULFATE
     Dosage: 0-4 TIMES PER DAY
     Route: 040
     Dates: start: 20150911, end: 20150915
  44. SUXAMETHONIUM [Concomitant]
     Active Substance: SUCCINYLCHOLINE
     Indication: SEDATION
     Dosage: ONCE
     Route: 040
     Dates: start: 20150910, end: 20150910
  45. METOCLOPRAMIDE. [Concomitant]
     Active Substance: METOCLOPRAMIDE
     Indication: IMPAIRED GASTRIC EMPTYING
     Route: 040
     Dates: start: 20150912, end: 20150916
  46. EPINEPHRINE. [Concomitant]
     Active Substance: EPINEPHRINE
     Indication: HYPOTENSION
     Dosage: 1-5 TIMES PER DAY
     Route: 041
     Dates: start: 20150912, end: 20150916
  47. ACTIVATED CARBON ADSORPTION [Concomitant]
     Indication: TOXICITY TO VARIOUS AGENTS
     Dates: start: 20150910, end: 20150911

REACTIONS (4)
  - Ileus paralytic [Recovered/Resolved]
  - Pneumothorax [Recovered/Resolved]
  - Hypercapnia [Recovered/Resolved]
  - Splenic infarction [Unknown]

NARRATIVE: CASE EVENT DATE: 20150910
